FAERS Safety Report 15749022 (Version 1)
Quarter: 2018Q4

REPORT INFORMATION
  Report Type: Spontaneous
  Country: RO (occurrence: RO)
  Receive Date: 20181221
  Receipt Date: 20181221
  Transmission Date: 20190205
  Serious: Yes (Other)
  Sender: FDA-Public Use
  Company Number: RO-SUN PHARMACEUTICAL INDUSTRIES LTD-2018RR-194456

PATIENT
  Age: 5 Year
  Sex: Male

DRUGS (2)
  1. CONVULEX   /00052501/ [Suspect]
     Active Substance: CARBAMAZEPINE
     Indication: EPILEPSY
     Dosage: 50 MILLIGRAM/KILOGRAM, DAILY
     Route: 065
  2. LEVETIRACETAM. [Suspect]
     Active Substance: LEVETIRACETAM
     Indication: SEIZURE
     Dosage: 60 MILLIGRAM/KILOGRAM, DAILY
     Route: 065
     Dates: start: 201405, end: 201507

REACTIONS (9)
  - Psychomotor disadaptation syndrome [Unknown]
  - Gait disturbance [Unknown]
  - Autism spectrum disorder [Unknown]
  - Leukoencephalopathy [Unknown]
  - Epilepsy [Unknown]
  - Clumsiness [Unknown]
  - Ataxia [Unknown]
  - Fall [Unknown]
  - Partial seizures [Unknown]

NARRATIVE: CASE EVENT DATE: 20140618
